FAERS Safety Report 10064690 (Version 1)
Quarter: 2014Q2

REPORT INFORMATION
  Report Type: Spontaneous
  Country: US (occurrence: US)
  Receive Date: 20140408
  Receipt Date: 20140408
  Transmission Date: 20141212
  Serious: Yes (Death)
  Sender: FDA-Public Use
  Company Number: US-SA-2014SA042305

PATIENT
  Age: 59 Year
  Sex: Female

DRUGS (1)
  1. RENVELA [Suspect]
     Indication: RENAL FAILURE CHRONIC
     Dosage: 800 MG TABLETS, 4 TABLETS THREE TIMES A DAY WITH MEALS AND 01 TABLET TWICE A DAY WITH SNACKS
     Route: 048
     Dates: end: 201403

REACTIONS (1)
  - Death [Fatal]
